FAERS Safety Report 21558052 (Version 1)
Quarter: 2022Q4

REPORT INFORMATION
  Report Type: Spontaneous
  Country: JP (occurrence: JP)
  Receive Date: 20221107
  Receipt Date: 20221107
  Transmission Date: 20230113
  Serious: Yes (Hospitalization)
  Sender: FDA-Public Use
  Company Number: JP-SUN PHARMACEUTICAL INDUSTRIES LTD-2022R1-360807

PATIENT
  Age: 93 Year
  Sex: Female
  Weight: 30 kg

DRUGS (3)
  1. VALACYCLOVIR HYDROCHLORIDE [Suspect]
     Active Substance: VALACYCLOVIR HYDROCHLORIDE
     Indication: Herpes zoster
     Dosage: 3000 MILLIGRAM, DAILY
     Route: 048
  2. ACYCLOVIR [Suspect]
     Active Substance: ACYCLOVIR
     Indication: Herpes zoster
     Dosage: UNK
     Route: 041
  3. ACYCLOVIR [Suspect]
     Active Substance: ACYCLOVIR
     Dosage: 5 MILLIGRAM/KILOGRAM, BID
     Route: 041

REACTIONS (5)
  - Loss of personal independence in daily activities [Recovering/Resolving]
  - Overdose [Unknown]
  - Renal disorder [Recovering/Resolving]
  - Drug clearance decreased [Recovering/Resolving]
  - Episcleritis [Recovering/Resolving]
